FAERS Safety Report 6737046-4 (Version None)
Quarter: 2010Q2

REPORT INFORMATION
  Report Type: 
  Country: None (occurrence: None)
  Receive Date: 20100524
  Receipt Date: 20100514
  Transmission Date: 20101027
  Serious: Yes (Hospitalization)
  Sender: FDA-Public Use
  Company Number: US-BIOGENIDEC-2010BI005414

PATIENT
  Sex: Female

DRUGS (1)
  1. AVONEX [Suspect]
     Indication: MULTIPLE SCLEROSIS
     Route: 030
     Dates: start: 20011029

REACTIONS (4)
  - NEURITIS [None]
  - RADICULITIS LUMBOSACRAL [None]
  - SPINAL FRACTURE [None]
  - SPINAL OSTEOARTHRITIS [None]
